FAERS Safety Report 4530054-3 (Version None)
Quarter: 2004Q4

REPORT INFORMATION
  Report Type: 
  Country: None (occurrence: None)
  Receive Date: 20041215
  Receipt Date: 20041215
  Transmission Date: 20050328
  Serious: Yes (Life-Threatening, Hospitalization, Disabling)
  Sender: FDA-Public Use
  Company Number: None

PATIENT
  Sex: Male
  Weight: 72.5755 kg

DRUGS (1)
  1. ACCUTANE [Suspect]
     Indication: ACNE
     Dosage: DOSE DAILY
     Dates: start: 19850101

REACTIONS (9)
  - AGGRESSION [None]
  - BONE MARROW TRANSPLANT [None]
  - CHRONIC MYELOID LEUKAEMIA [None]
  - COLLAPSE OF LUNG [None]
  - GRAFT VERSUS HOST DISEASE [None]
  - HEPATIC CIRRHOSIS [None]
  - IRRITABILITY [None]
  - MYELOFIBROSIS [None]
  - SPLENOMEGALY [None]
